FAERS Safety Report 26041204 (Version 2)
Quarter: 2025Q4

REPORT INFORMATION
  Report Type: Spontaneous
  Country: EU (occurrence: EU)
  Receive Date: 20251113
  Receipt Date: 20251210
  Transmission Date: 20260119
  Serious: Yes (Congenital Anomaly, Other)
  Sender: PFIZER
  Company Number: EU-EMB-M202407040-1

PATIENT
  Sex: Female

DRUGS (12)
  1. PANTOPRAZOLE [Suspect]
     Active Substance: PANTOPRAZOLE
     Indication: Gastritis prophylaxis
     Dosage: 20 MG
     Route: 064
     Dates: start: 202312, end: 202409
  2. IPRATROPIUM [Suspect]
     Active Substance: IPRATROPIUM
     Indication: Cystic fibrosis
     Dosage: 250 UG
     Route: 064
     Dates: start: 202312, end: 202409
  3. SERTRALINE [Suspect]
     Active Substance: SERTRALINE HYDROCHLORIDE
     Indication: Depression
     Dosage: 200 MG, 1X/DAY
     Route: 064
     Dates: start: 202312, end: 202409
  4. FLUTIFORM [Suspect]
     Active Substance: FLUTIFORM
     Indication: Cystic fibrosis
     Dosage: 5 UG, 1X/DAY
     Route: 064
     Dates: start: 202312, end: 202409
  5. SPIRIVA [Suspect]
     Active Substance: TIOTROPIUM BROMIDE MONOHYDRATE
     Indication: Cystic fibrosis
     Dosage: UNK
     Route: 064
     Dates: start: 202312, end: 202409
  6. FEXOFENADINE [Suspect]
     Active Substance: FEXOFENADINE HYDROCHLORIDE
     Indication: Seasonal allergy
     Dosage: 120 MG
     Route: 064
     Dates: start: 202312, end: 202409
  7. ELEXACAFTOR\IVACAFTOR\TEZACAFTOR [Suspect]
     Active Substance: ELEXACAFTOR\IVACAFTOR\TEZACAFTOR
     Indication: Cystic fibrosis
     Dosage: UNK
     Route: 064
     Dates: start: 202312, end: 202409
  8. SODIUM CHLORIDE [Suspect]
     Active Substance: SODIUM CHLORIDE
     Dosage: UNK
     Route: 064
  9. INFLUENZA VIRUS VACCINE [Concomitant]
     Active Substance: INFLUENZA VIRUS VACCINE
     Indication: Immunisation
     Dosage: DOSE NUMBER UNKNOWN, SINGLE
     Route: 064
  10. SODIUM CHLORIDE [Concomitant]
     Active Substance: SODIUM CHLORIDE
     Indication: Cystic fibrosis
     Dosage: UNK
     Route: 064
     Dates: start: 202312, end: 202409
  11. PERTUSSIS VACCINE [Concomitant]
     Active Substance: PERTUSSIS VACCINE
     Indication: Immunisation
     Dosage: DOSE NUMBER UNKNOWN, SINGLE
     Route: 064
  12. FOLIC ACID [Concomitant]
     Active Substance: FOLIC ACID
     Indication: Vitamin supplementation
     Dosage: UNK, 1X/DAY
     Route: 064

REACTIONS (3)
  - Microcephaly [Unknown]
  - Small for dates baby [Unknown]
  - Foetal exposure during pregnancy [Unknown]

NARRATIVE: CASE EVENT DATE: 20240901
